FAERS Safety Report 15788170 (Version 2)
Quarter: 2019Q1

REPORT INFORMATION
  Report Type: Spontaneous
  Country: US (occurrence: US)
  Receive Date: 20190104
  Receipt Date: 20190131
  Transmission Date: 20190417
  Serious: Yes (Death, Other)
  Sender: FDA-Public Use
  Company Number: US-B.I. PHARMACEUTICALS,INC./RIDGEFIELD-2019-BI-000345

PATIENT
  Age: 89 Year
  Sex: Female

DRUGS (1)
  1. OFEV [Suspect]
     Active Substance: NINTEDANIB
     Indication: IDIOPATHIC PULMONARY FIBROSIS
     Dosage: ACTION(S) TAKEN WITH PRODUCT: NOT APPLICABLE
     Route: 048
     Dates: start: 201801

REACTIONS (1)
  - Death [Fatal]

NARRATIVE: CASE EVENT DATE: 20181016
